FAERS Safety Report 9455316 (Version 1)
Quarter: 2013Q3

REPORT INFORMATION
  Report Type: Spontaneous
  Country: IT (occurrence: IT)
  Receive Date: 20130813
  Receipt Date: 20130813
  Transmission Date: 20140515
  Serious: Yes (Hospitalization)
  Sender: FDA-Public Use
  Company Number: IT-JNJFOC-20130803377

PATIENT
  Age: 38 Year
  Sex: Male

DRUGS (10)
  1. INVEGA [Suspect]
     Indication: DRUG ABUSE
     Route: 048
     Dates: start: 20130502, end: 20130502
  2. INVEGA [Suspect]
     Indication: DRUG ABUSE
     Route: 048
  3. INVEGA [Suspect]
     Indication: PSYCHOTIC DISORDER
     Route: 048
  4. INVEGA [Suspect]
     Indication: PSYCHOTIC DISORDER
     Route: 048
     Dates: start: 20130502, end: 20130502
  5. SEROQUEL [Suspect]
     Indication: DRUG ABUSE
     Route: 048
  6. SEROQUEL [Suspect]
     Indication: DRUG ABUSE
     Route: 048
     Dates: start: 20130502, end: 20130502
  7. SEROQUEL [Suspect]
     Indication: PSYCHOTIC DISORDER
     Route: 048
  8. SEROQUEL [Suspect]
     Indication: PSYCHOTIC DISORDER
     Route: 048
     Dates: start: 20130502, end: 20130502
  9. DELORAZEPAM [Concomitant]
     Indication: PSYCHOTIC DISORDER
     Route: 048
  10. ENTUMIN [Concomitant]
     Indication: PSYCHOTIC DISORDER
     Route: 048

REACTIONS (6)
  - Acute respiratory failure [Recovering/Resolving]
  - Coma [Recovering/Resolving]
  - Agitation [Recovering/Resolving]
  - Tachycardia [Recovering/Resolving]
  - Sopor [Recovering/Resolving]
  - Overdose [Recovering/Resolving]
